FAERS Safety Report 10345851 (Version 1)
Quarter: 2014Q3

REPORT INFORMATION
  Report Type: Spontaneous
  Country: US (occurrence: None)
  Receive Date: 20140725
  Receipt Date: 20140725
  Transmission Date: 20150326
  Serious: Yes (Hospitalization)
  Sender: FDA-Public Use
  Company Number: None

PATIENT
  Age: 61 Year
  Sex: Male
  Weight: 61.8 kg

DRUGS (11)
  1. PRILOSEC [Concomitant]
     Active Substance: OMEPRAZOLE MAGNESIUM
  2. JANUVIA [Concomitant]
     Active Substance: SITAGLIPTIN PHOSPHATE
  3. RIBAVIRIN. [Suspect]
     Active Substance: RIBAVIRIN
     Indication: HEPATITIS C
     Route: 048
     Dates: start: 20140131, end: 20140425
  4. SOFOSBUVIR [Suspect]
     Active Substance: SOFOSBUVIR
     Indication: HEPATITIS C
     Route: 048
     Dates: start: 20140131, end: 20140425
  5. ATARAX [Concomitant]
     Active Substance: HYDROXYZINE\HYDROXYZINE HYDROCHLORIDE
  6. REBETOL [Concomitant]
     Active Substance: RIBAVIRIN
  7. FORTEO [Concomitant]
     Active Substance: TERIPARATIDE
  8. GLYBURIDE. [Concomitant]
     Active Substance: GLYBURIDE
  9. ACTIGALL [Concomitant]
     Active Substance: URSODIOL
  10. DILSUDID [Concomitant]
  11. PROGRAF [Concomitant]
     Active Substance: TACROLIMUS\TACROLIMUS ANHYDROUS

REACTIONS (5)
  - Lethargy [None]
  - Decreased appetite [None]
  - Dehydration [None]
  - Cholangitis [None]
  - Hypophagia [None]

NARRATIVE: CASE EVENT DATE: 20140221
